FAERS Safety Report 25353694 (Version 1)
Quarter: 2025Q2

REPORT INFORMATION
  Report Type: Spontaneous
  Country: NL (occurrence: NL)
  Receive Date: 20250523
  Receipt Date: 20250523
  Transmission Date: 20250716
  Serious: Yes (Other)
  Sender: MYLAN
  Company Number: None

PATIENT
  Age: 36 Year
  Sex: Male
  Weight: 82 kg

DRUGS (1)
  1. TRAMADOL [Suspect]
     Active Substance: TRAMADOL
     Indication: Back pain
     Dosage: 50 MILLIGRAM, Q8H (3 X PER DAY 1 PIECE)
     Dates: start: 20240725

REACTIONS (3)
  - Depersonalisation/derealisation disorder [Recovering/Resolving]
  - Derealisation [Recovering/Resolving]
  - Anxiety [Recovering/Resolving]
